FAERS Safety Report 9462521 (Version 1)
Quarter: 2013Q3

REPORT INFORMATION
  Report Type: Spontaneous
  Country: US (occurrence: None)
  Receive Date: 20130815
  Receipt Date: 20130815
  Transmission Date: 20140515
  Serious: Yes (Hospitalization)
  Sender: FDA-Public Use
  Company Number: None

PATIENT
  Age: 72 Year
  Sex: Male
  Weight: 89.6 kg

DRUGS (1)
  1. SITAGLIPTIN [Suspect]
     Route: 048
     Dates: start: 20120720, end: 20130220

REACTIONS (3)
  - Pancreatitis acute [None]
  - Vomiting [None]
  - Nausea [None]
